FAERS Safety Report 7176942-3 (Version None)
Quarter: 2010Q4

REPORT INFORMATION
  Report Type: 
  Country: None (occurrence: None)
  Receive Date: 20101220
  Receipt Date: 20101213
  Transmission Date: 20110411
  Serious: Yes (Other)
  Sender: FDA-Public Use
  Company Number: JP-PFIZER INC-2010171430

PATIENT
  Age: 62 Year
  Sex: Female

DRUGS (3)
  1. SUNITINIB MALATE [Suspect]
     Indication: GASTROINTESTINAL STROMAL TUMOUR
     Dosage: 50 MG, 1X/DAY FOR 4 WEEKS, EVERY 6 WEEKS
  2. SUNITINIB MALATE [Suspect]
     Dosage: 37.5 MG, 1X/DAY
  3. SUNITINIB MALATE [Suspect]
     Dosage: 25 MG, 1X/DAY

REACTIONS (9)
  - DEHYDRATION [None]
  - DIARRHOEA [None]
  - HYPOTHYROIDISM [None]
  - LEUKOCYTOSIS [None]
  - NAUSEA [None]
  - PALMAR-PLANTAR ERYTHRODYSAESTHESIA SYNDROME [None]
  - PYREXIA [None]
  - VESICAL FISTULA [None]
  - VOMITING [None]
